FAERS Safety Report 26214770 (Version 1)
Quarter: 2025Q4

REPORT INFORMATION
  Report Type: Spontaneous
  Country: EU (occurrence: EU)
  Receive Date: 20251230
  Receipt Date: 20251230
  Transmission Date: 20260117
  Serious: Yes (Other)
  Sender: MYLAN
  Company Number: None

PATIENT
  Age: 60 Year
  Sex: Female
  Weight: 55 kg

DRUGS (19)
  1. ALPRAZOLAM [Suspect]
     Active Substance: ALPRAZOLAM
     Indication: Product used for unknown indication
     Dosage: 0.5 MILLIGRAM, QD
     Dates: start: 20251126, end: 20251208
  2. ALPRAZOLAM [Suspect]
     Active Substance: ALPRAZOLAM
     Dosage: 1 MILLIGRAM, QD
     Dates: start: 20251209
  3. OXAZEPAM [Suspect]
     Active Substance: OXAZEPAM
     Indication: Product used for unknown indication
     Dosage: 5 MILLIGRAM, QD, 1 TABLET DAILY, AND SEVERAL TIMES MORE IF NEEDED
     Dates: start: 20251126
  4. OXAZEPAM [Suspect]
     Active Substance: OXAZEPAM
     Dosage: 5 MILLIGRAM, PRN, 1 TABLET DAILY, AND SEVERAL TIMES MORE IF NEEDED
  5. OXAZEPAM [Suspect]
     Active Substance: OXAZEPAM
     Dosage: 5 MILLIGRAM, 1 PRN (ASNECESSARY)
  6. OXYCODONE HYDROCHLORIDE [Concomitant]
     Active Substance: OXYCODONE HYDROCHLORIDE
     Dosage: 5 MILLIGRAM,1 PRN (AS NECESSARY)
  7. OXYCODONE HYDROCHLORIDE [Concomitant]
     Active Substance: OXYCODONE HYDROCHLORIDE
     Dosage: 0.2-0.5 ML WHEN NEEDED, PRN
  8. ACETAMINOPHEN [Concomitant]
     Active Substance: ACETAMINOPHEN
     Dosage: 1-2 TABLETS WHEN NEEDED, PRN (ASNECESSARY)
  9. TARGINIQ ER [Concomitant]
     Active Substance: NALOXONE HYDROCHLORIDE\OXYCODONE HYDROCHLORIDE
     Dosage: 1 DOSAGE FORM, BID
     Dates: start: 20251128
  10. ROBINUL [Concomitant]
     Active Substance: GLYCOPYRROLATE
     Dosage: 1 MILLILITER, PRN {ASNECESSARY}
  11. INNOHEP [Concomitant]
     Active Substance: TINZAPARIN SODIUM
     Dosage: UNK UNK, QD
     Dates: start: 20251112
  12. INNOHEP [Concomitant]
     Active Substance: TINZAPARIN SODIUM
     Dosage: UNK UNK, QD
     Dates: start: 20251112
  13. HALDOL [Concomitant]
     Active Substance: HALOPERIDOL
     Dosage: 0.2-0.5 WHEN NEEDED, PRN
  14. LEVOTHYROXINE SODIUM [Concomitant]
     Active Substance: LEVOTHYROXINE SODIUM
     Dosage: 50 MICROGRAM, QD
     Dates: start: 20121016
  15. ESOMEPRAZOLE [Concomitant]
     Active Substance: ESOMEPRAZOLE
     Dosage: 40 MILLIGRAM, QD
     Dates: start: 20251109
  16. RINGER-ACETAT BAXTER VIAFLO [Concomitant]
     Dosage: 1000 MILLILITER, PRN {ASNECESSARY}
  17. MIDAZOLAM HYDROCHLORIDE [Concomitant]
     Active Substance: MIDAZOLAM HYDROCHLORIDE
     Dosage: 0.2-0.5 ML WHEN NEEDED, PRN
  18. TAGRISSO [Concomitant]
     Active Substance: OSIMERTINIB
     Dosage: 80 MILLIGRAM, QD
     Dates: start: 20251018
  19. BETAPRED [Concomitant]
     Active Substance: BETAMETHASONE SODIUM PHOSPHATE
     Dosage: 2 GRAM, QD
     Dates: start: 20251007

REACTIONS (8)
  - Depressed level of consciousness [Not Recovered/Not Resolved]
  - Fall [Not Recovered/Not Resolved]
  - Restlessness [Not Recovered/Not Resolved]
  - Gait disturbance [Not Recovered/Not Resolved]
  - Disorientation [Not Recovered/Not Resolved]
  - Confusional state [Not Recovered/Not Resolved]
  - Anxiety [Not Recovered/Not Resolved]
  - Somnolence [Not Recovered/Not Resolved]

NARRATIVE: CASE EVENT DATE: 20251201
